FAERS Safety Report 9784913 (Version 2)
Quarter: 2014Q1

REPORT INFORMATION
  Report Type: Spontaneous
  Country: US (occurrence: US)
  Receive Date: 20131227
  Receipt Date: 20140113
  Transmission Date: 20141002
  Serious: Yes (Life-Threatening)
  Sender: FDA-Public Use
  Company Number: US-MERCK-1312USA010958

PATIENT
  Age: 47 Year
  Sex: 0

DRUGS (8)
  1. REBETOL [Suspect]
     Indication: HEPATITIS C
     Dosage: 800 UNK, UNK
     Route: 048
  2. PEGINTERFERON ALFA-2B [Suspect]
     Indication: HEPATITIS C
     Dosage: 180 MICROGRAM, QW
     Route: 058
  3. TELAPREVIR [Suspect]
     Indication: HEPATITIS C
     Dosage: 2 DF, Q8H
  4. RALTEGRAVIR POTASSIUM [Concomitant]
     Indication: ANTIRETROVIRAL THERAPY
  5. ABACAVIR SULFATE [Concomitant]
     Indication: ANTIRETROVIRAL THERAPY
  6. LAMIVUDINE [Concomitant]
     Indication: ANTIRETROVIRAL THERAPY
  7. ATAZANAVIR [Concomitant]
     Indication: ANTIRETROVIRAL THERAPY
  8. RITONAVIR [Concomitant]

REACTIONS (1)
  - Anaemia [Unknown]
